FAERS Safety Report 21951114 (Version 2)
Quarter: 2023Q1

REPORT INFORMATION
  Report Type: Spontaneous
  Country: CN (occurrence: None)
  Receive Date: 20230203
  Receipt Date: 20230214
  Transmission Date: 20230417
  Serious: Yes (Death)
  Sender: FDA-Public Use
  Company Number: 2023A027921

PATIENT
  Age: 66 Year
  Sex: Male
  Weight: 60 kg

DRUGS (4)
  1. IMFINZI [Suspect]
     Active Substance: DURVALUMAB
     Indication: Small cell lung cancer extensive stage
     Dosage: 1000 MG/CYCLE (EVERY 21 DAYS)
     Route: 042
     Dates: start: 20211130, end: 202212
  2. ETOPOSIDE [Concomitant]
     Active Substance: ETOPOSIDE
     Dosage: STOPPED IT AFTER USING SIX TIMES, AND ADJUSTED THE CHEMOTHERAPY PLAN ACCORDING TO THE DOCTOR^S AD...
  3. CARBOPLATIN [Concomitant]
     Active Substance: CARBOPLATIN
     Dosage: STOPPED IT AFTER USING SIX TIMES
  4. CISPLATIN [Concomitant]
     Active Substance: CISPLATIN

REACTIONS (1)
  - COVID-19 [Fatal]

NARRATIVE: CASE EVENT DATE: 20221201
